FAERS Safety Report 15493370 (Version 1)
Quarter: 2018Q4

REPORT INFORMATION
  Report Type: Spontaneous
  Country: US (occurrence: US)
  Receive Date: 20181012
  Receipt Date: 20181012
  Transmission Date: 20190205
  Serious: No
  Sender: FDA-Public Use
  Company Number: US-ASTRAZENECA-2018SF18446

PATIENT
  Sex: Male

DRUGS (1)
  1. FASENRA [Suspect]
     Active Substance: BENRALIZUMAB
     Indication: ASTHMA
     Dosage: EVERY 4 WEEKS TIMES 3 THEN EVERY 8 WEEKS
     Route: 058
     Dates: start: 201808

REACTIONS (1)
  - Influenza like illness [Recovered/Resolved]
